FAERS Safety Report 10485259 (Version 2)
Quarter: 2014Q4

REPORT INFORMATION
  Report Type: Spontaneous
  Country: JP (occurrence: JP)
  Receive Date: 20140930
  Receipt Date: 20141020
  Transmission Date: 20150528
  Serious: Yes (Hospitalization)
  Sender: FDA-Public Use
  Company Number: JP-ROCHE-1465111

PATIENT
  Age: 57 Year
  Sex: Female
  Weight: 42 kg

DRUGS (6)
  1. FEROTYM [Concomitant]
     Active Substance: FERROUS CITRATE\SODIUM
     Indication: ANAEMIA
     Route: 065
     Dates: start: 20140513
  2. SOVRIAD [Suspect]
     Active Substance: SIMEPREVIR
     Indication: CHRONIC HEPATITIS C
     Route: 048
     Dates: start: 20140520, end: 20140526
  3. LOXONIN [Concomitant]
     Active Substance: LOXOPROFEN SODIUM
  4. PEGASYS [Suspect]
     Active Substance: PEGINTERFERON ALFA-2A
     Indication: CHRONIC HEPATITIS C
     Route: 058
     Dates: start: 20140520, end: 20140526
  5. REBAMIPIDE [Concomitant]
     Active Substance: REBAMIPIDE
  6. COPEGUS [Suspect]
     Active Substance: RIBAVIRIN
     Indication: CHRONIC HEPATITIS C
     Dosage: 200MG IN THE MORNING, 100MG IN THE EVENING
     Route: 048
     Dates: start: 20140520, end: 20140526

REACTIONS (4)
  - Platelet count decreased [Recovered/Resolved]
  - White blood cell count decreased [Recovered/Resolved]
  - Neutropenia [Recovered/Resolved]
  - Gastritis haemorrhagic [Recovered/Resolved]

NARRATIVE: CASE EVENT DATE: 20140526
